FAERS Safety Report 9666255 (Version 1)
Quarter: 2013Q4

REPORT INFORMATION
  Report Type: Spontaneous
  Country: US (occurrence: None)
  Receive Date: 20131101
  Receipt Date: 20131101
  Transmission Date: 20140711
  Serious: Yes (Life-Threatening, Hospitalization)
  Sender: FDA-Public Use
  Company Number: None

PATIENT
  Age: 6 Year
  Sex: Male

DRUGS (3)
  1. VALPROIC ACID [Suspect]
     Dosage: 11 ML THREE TIMES A DAY THROUGH FEEDING TUBE; OCT 2012 TO CURRENT, POSSIBLE PRIOR TO OCT 2012
     Dates: start: 201210
  2. LEVETIRACETAM [Concomitant]
  3. PHENOBARBITAL ELIXIR [Concomitant]

REACTIONS (3)
  - Lip haemorrhage [None]
  - Mouth haemorrhage [None]
  - Drug level increased [None]
